FAERS Safety Report 8760353 (Version 1)
Quarter: 2012Q4

REPORT INFORMATION
  Report Type: Spontaneous
  Country: US (occurrence: None)
  Receive Date: 20120829
  Receipt Date: 20120829
  Transmission Date: 20130627
  Serious: Yes (Disabling)
  Sender: FDA-Public Use
  Company Number: None

PATIENT
  Age: 45 Year
  Sex: Female
  Weight: 81.65 kg

DRUGS (1)
  1. TOPAMAX [Suspect]

REACTIONS (6)
  - Fall [None]
  - Cerebral atrophy [None]
  - Visual impairment [None]
  - Speech disorder [None]
  - Balance disorder [None]
  - Eye movement disorder [None]
